FAERS Safety Report 17329913 (Version 1)
Quarter: 2020Q1

REPORT INFORMATION
  Report Type: Spontaneous
  Country: US (occurrence: US)
  Receive Date: 20200127
  Receipt Date: 20200127
  Transmission Date: 20200409
  Serious: Yes (Other)
  Sender: FDA-Public Use
  Company Number: None

PATIENT
  Age: 47 Year
  Sex: Female
  Weight: 84.6 kg

DRUGS (2)
  1. BELVIQ [Concomitant]
     Active Substance: LORCASERIN HYDROCHLORIDE
     Dates: start: 20190808, end: 20191115
  2. BELVIQ [Suspect]
     Active Substance: LORCASERIN HYDROCHLORIDE
     Indication: BLOOD PROLACTIN INCREASED
     Route: 048
     Dates: start: 20190808, end: 20191115

REACTIONS (1)
  - Blood prolactin increased [None]

NARRATIVE: CASE EVENT DATE: 20191115
